FAERS Safety Report 7146367-5 (Version None)
Quarter: 2010Q4

REPORT INFORMATION
  Report Type: 
  Country: None (occurrence: None)
  Receive Date: 20101208
  Receipt Date: 20091228
  Transmission Date: 20110411
  Serious: No
  Sender: FDA-Public Use
  Company Number: US-BRISTOL-MYERS SQUIBB COMPANY-14913883

PATIENT
  Age: 73 Year
  Sex: Male
  Weight: 86 kg

DRUGS (3)
  1. PRAVACHOL [Suspect]
     Indication: BLOOD CHOLESTEROL INCREASED
     Dosage: INITIAL DOSE 20MG DAILY(FOR 15 YRS);FOR 5 YRS 40MG DAILY.
  2. DIOVAN [Concomitant]
  3. NORVASC [Concomitant]

REACTIONS (4)
  - BACK INJURY [None]
  - BACK PAIN [None]
  - CONTUSION [None]
  - PAIN IN EXTREMITY [None]
